FAERS Safety Report 5427290-0 (Version None)
Quarter: 2007Q3

REPORT INFORMATION
  Report Type: 
  Country: None (occurrence: None)
  Receive Date: 20070828
  Receipt Date: 20070817
  Transmission Date: 20080115
  Serious: Yes (Life-Threatening, Hospitalization, Disabling)
  Sender: FDA-Public Use
  Company Number: HQWYE694720AUG07

PATIENT
  Sex: Female

DRUGS (3)
  1. CORDARONE [Suspect]
     Indication: ATRIAL FIBRILLATION
     Dosage: 200 MG TABLET - DOSE AND REGIMEN UNKNOWN
     Route: 048
     Dates: start: 19990101
  2. LASIX [Concomitant]
     Indication: RENAL FAILURE CHRONIC
     Dosage: UNKNOWN
     Route: 048
  3. PREVISCAN [Suspect]
     Indication: ATRIAL FIBRILLATION
     Dosage: 20 MG TABLET - DOSE AND REGIMEN UNKNOWN
     Route: 048
     Dates: start: 19990101, end: 20070413

REACTIONS (2)
  - CEREBELLAR HAEMATOMA [None]
  - HYDROCEPHALUS [None]
